FAERS Safety Report 18295461 (Version 2)
Quarter: 2020Q4

REPORT INFORMATION
  Report Type: Report from Study
  Country: CO (occurrence: CO)
  Receive Date: 20200922
  Receipt Date: 20201013
  Transmission Date: 20210113
  Serious: Yes (Hospitalization, Other)
  Sender: FDA-Public Use
  Company Number: CO-JNJFOC-A-CH2019-185543

PATIENT
  Age: 77 Year
  Sex: Male
  Weight: 60 kg

DRUGS (6)
  1. OXYGEN. [Concomitant]
     Active Substance: OXYGEN
  2. CARVEDILOL. [Concomitant]
     Active Substance: CARVEDILOL
  3. OPSUMIT [Suspect]
     Active Substance: MACITENTAN
     Dosage: 10 MG, QD
     Route: 048
     Dates: start: 20191028
  4. OPSUMIT [Suspect]
     Active Substance: MACITENTAN
     Indication: PULMONARY ARTERIAL HYPERTENSION
     Dosage: 10 MG, QD
     Route: 048
     Dates: start: 20190122, end: 201910
  5. FUROSEMIDE. [Suspect]
     Active Substance: FUROSEMIDE
     Indication: FLUID RETENTION
     Route: 065
  6. ASPIRIN. [Concomitant]
     Active Substance: ASPIRIN

REACTIONS (31)
  - Inguinal hernia [Recovering/Resolving]
  - Dizziness [Not Recovered/Not Resolved]
  - Fluid retention [Recovered/Resolved]
  - Ear pain [Recovering/Resolving]
  - Dyspnoea [Recovering/Resolving]
  - Loss of consciousness [Not Recovered/Not Resolved]
  - Apnoea [Recovered/Resolved]
  - Influenza like illness [Not Recovered/Not Resolved]
  - Chest pain [Unknown]
  - Malaise [Recovering/Resolving]
  - Dizziness [Unknown]
  - Fatigue [Not Recovered/Not Resolved]
  - Haematoma [Not Recovered/Not Resolved]
  - Catheterisation cardiac [Unknown]
  - Head injury [Not Recovered/Not Resolved]
  - Choking sensation [Not Recovered/Not Resolved]
  - Vomiting [Unknown]
  - Abdominal pain upper [Recovering/Resolving]
  - Hypotension [Not Recovered/Not Resolved]
  - Blood pressure inadequately controlled [Recovering/Resolving]
  - Pulmonary thrombosis [Recovering/Resolving]
  - Ear discomfort [Recovering/Resolving]
  - Depressed mood [Unknown]
  - Fall [Not Recovered/Not Resolved]
  - Peripheral swelling [Recovered/Resolved]
  - Brain hypoxia [Unknown]
  - Urinary retention [Not Recovered/Not Resolved]
  - Anxiety [Unknown]
  - Boredom [Unknown]
  - Anaesthesia [Unknown]
  - Constipation [Not Recovered/Not Resolved]

NARRATIVE: CASE EVENT DATE: 20190122
